FAERS Safety Report 6320346-X (Version None)
Quarter: 2009Q3

REPORT INFORMATION
  Report Type: 
  Country: None (occurrence: None)
  Receive Date: 20090822
  Receipt Date: 20081106
  Transmission Date: 20100115
  Serious: No
  Sender: FDA-Public Use
  Company Number: US-ABBOTT-08P-163-0485066-00

PATIENT
  Sex: Male
  Weight: 104.42 kg

DRUGS (12)
  1. NIASPAN [Suspect]
     Indication: BLOOD CHOLESTEROL
     Dosage: 1500 MG AT BED TIME
  2. NIASPAN [Suspect]
     Dates: start: 20081029
  3. GEMFIBROZIL [Concomitant]
     Indication: BLOOD CHOLESTEROL
     Route: 048
  4. FUROSEMIDE [Concomitant]
     Indication: OEDEMA PERIPHERAL
     Dosage: 40 MG, TWICE DAILY, 5 DAYS A WEEK
     Route: 048
  5. OMEPRAZOLE SODIUM [Concomitant]
     Indication: GASTRIC DISORDER
     Dosage: 20 MG DAILY
     Route: 048
  6. SITAGLIPTIN PHOSPHATE [Concomitant]
     Indication: DIABETES MELLITUS
     Route: 048
     Dates: start: 20070101
  7. LISINOPRIL [Concomitant]
     Indication: HYPERTENSION
     Route: 048
  8. METOPROLOL TARTRATE [Concomitant]
     Indication: HYPERTENSION
     Dosage: 25 MG DAILY
     Route: 048
  9. METHADONE [Concomitant]
     Indication: PAIN
     Route: 048
  10. OXYCODONE [Concomitant]
     Indication: BREAKTHROUGH PAIN
     Route: 048
  11. INSULIN ASPART NOVOLIN [Concomitant]
     Indication: DIABETES MELLITUS
     Dosage: 12 U AM, 5 U PM, 12U AT DINNER
     Route: 058
  12. INSULIN ASPART [Concomitant]
     Indication: DIABETES MELLITUS
     Dosage: 16 UNITS AT BED TIME
     Route: 058

REACTIONS (1)
  - HYPERHIDROSIS [None]
